FAERS Safety Report 12807515 (Version 1)
Quarter: 2016Q4

REPORT INFORMATION
  Report Type: Spontaneous
  Country: US (occurrence: US)
  Receive Date: 20161004
  Receipt Date: 20161004
  Transmission Date: 20170207
  Serious: Yes (Other)
  Sender: FDA-Public Use
  Company Number: US-FSC THERAPEUTICS-2016ECL00045

PATIENT
  Age: 88 Year
  Sex: Male

DRUGS (15)
  1. IMATINIB [Suspect]
     Active Substance: IMATINIB
     Dosage: 300 MG, 1X/DAY
     Dates: start: 201201, end: 201308
  2. TAMSULOSIN [Concomitant]
     Active Substance: TAMSULOSIN
     Route: 065
  3. BOSUTINIB [Suspect]
     Active Substance: BOSUTINIB
     Indication: CHRONIC MYELOID LEUKAEMIA
     Dosage: 500 MG, 1X/DAY
     Route: 065
     Dates: start: 201312
  4. BOSUTINIB [Suspect]
     Active Substance: BOSUTINIB
     Dosage: 300 MG, 1X/DAY
     Route: 065
     Dates: start: 201405
  5. FINASTERIDE. [Concomitant]
     Active Substance: FINASTERIDE
     Route: 065
  6. NILOTINIB [Suspect]
     Active Substance: NILOTINIB
     Dosage: 400 MG, 1X/DAY
     Route: 065
     Dates: start: 2011, end: 201110
  7. IMATINIB [Suspect]
     Active Substance: IMATINIB
     Dosage: 400 MG, 1X/DAY
     Dates: start: 201111, end: 201201
  8. IMATINIB [Suspect]
     Active Substance: IMATINIB
     Indication: CHRONIC MYELOID LEUKAEMIA
     Dosage: 400 MG, 1X/DAY
     Route: 065
     Dates: start: 201001, end: 201102
  9. IMATINIB [Suspect]
     Active Substance: IMATINIB
     Dosage: 400 MG, 1X/DAY
     Route: 065
     Dates: start: 201308, end: 201311
  10. NILOTINIB [Suspect]
     Active Substance: NILOTINIB
     Indication: CHRONIC MYELOID LEUKAEMIA
     Dosage: 400 MG, 2X/DAY
     Route: 065
     Dates: start: 201109, end: 2011
  11. BOSUTINIB [Suspect]
     Active Substance: BOSUTINIB
     Dosage: 500 MG, 3X/WEEK
     Route: 065
     Dates: end: 201401
  12. DIAZEPAM. [Concomitant]
     Active Substance: DIAZEPAM
     Route: 065
  13. RABEPRAZOLE SODIUM. [Suspect]
     Active Substance: RABEPRAZOLE SODIUM
     Route: 065
  14. DASATINIB [Suspect]
     Active Substance: DASATINIB
     Indication: CHRONIC MYELOID LEUKAEMIA
     Dosage: 100 MG, 1X/DAY
     Route: 065
     Dates: start: 201103, end: 201107
  15. BOSUTINIB [Suspect]
     Active Substance: BOSUTINIB
     Dosage: 200 MG, 1X/DAY
     Dates: start: 201402, end: 201405

REACTIONS (2)
  - Inappropriate antidiuretic hormone secretion [Unknown]
  - Drug interaction [Not Recovered/Not Resolved]

NARRATIVE: CASE EVENT DATE: 201011
